FAERS Safety Report 9289643 (Version 1)
Quarter: 2013Q2

REPORT INFORMATION
  Report Type: Spontaneous
  Country: US (occurrence: US)
  Receive Date: 20130515
  Receipt Date: 20130515
  Transmission Date: 20140414
  Serious: No
  Sender: FDA-Public Use
  Company Number: US-BIOGENIDEC-2013BI041808

PATIENT
  Sex: Female

DRUGS (4)
  1. TYSABRI [Suspect]
     Indication: MULTIPLE SCLEROSIS
     Route: 042
     Dates: start: 20080903, end: 20101013
  2. TYSABRI [Suspect]
     Indication: MULTIPLE SCLEROSIS
     Route: 042
     Dates: start: 20120810
  3. CYMBALTA [Concomitant]
     Indication: DEPRESSION
  4. VALIUM [Concomitant]
     Indication: DEPRESSION

REACTIONS (3)
  - Weight decreased [Recovered/Resolved]
  - Energy increased [Recovered/Resolved]
  - Cough [Not Recovered/Not Resolved]
